FAERS Safety Report 10678826 (Version 1)
Quarter: 2014Q4

REPORT INFORMATION
  Report Type: Spontaneous
  Country: US (occurrence: US)
  Receive Date: 20141229
  Receipt Date: 20141229
  Transmission Date: 20150529
  Serious: No
  Sender: FDA-Public Use
  Company Number: US-PFIZER INC-2014355934

PATIENT
  Age: 82 Year
  Sex: Female

DRUGS (1)
  1. CHANTIX [Suspect]
     Active Substance: VARENICLINE TARTRATE
     Dosage: UNK

REACTIONS (5)
  - Vomiting [Unknown]
  - Malaise [Unknown]
  - Paranasal sinus hypersecretion [Unknown]
  - Feeling abnormal [Unknown]
  - Secretion discharge [Unknown]
